FAERS Safety Report 12088588 (Version 1)
Quarter: 2016Q1

REPORT INFORMATION
  Report Type: Spontaneous
  Country: SE (occurrence: SE)
  Receive Date: 20160218
  Receipt Date: 20160218
  Transmission Date: 20160526
  Serious: Yes (Other)
  Sender: FDA-Public Use
  Company Number: SE-ACCORD-037765

PATIENT
  Age: 31 Year
  Sex: Male

DRUGS (3)
  1. SERTRALINE [Suspect]
     Active Substance: SERTRALINE HYDROCHLORIDE
     Indication: PRODUCT USED FOR UNKNOWN INDICATION
  2. VENLAFAXINE/VENLAFAXINE HYDROCHLORIDE [Suspect]
     Active Substance: VENLAFAXINE HYDROCHLORIDE
     Indication: PRODUCT USED FOR UNKNOWN INDICATION
  3. TRIENTINE [Concomitant]
     Active Substance: TRIENTINE

REACTIONS (7)
  - Diplopia [Recovering/Resolving]
  - Oromandibular dystonia [Recovering/Resolving]
  - Gait disturbance [Recovering/Resolving]
  - Asthenia [Recovering/Resolving]
  - Dysarthria [Recovering/Resolving]
  - Action tremor [Recovering/Resolving]
  - Blepharospasm [Recovering/Resolving]
